FAERS Safety Report 5086659-7 (Version None)
Quarter: 2006Q3

REPORT INFORMATION
  Report Type: 
  Country: None (occurrence: None)
  Receive Date: 20060823
  Receipt Date: 20050913
  Transmission Date: 20061208
  Serious: No
  Sender: FDA-Public Use
  Company Number: US-GLAXOSMITHKLINE-A0574103A

PATIENT
  Age: 18 Year
  Sex: Female

DRUGS (1)
  1. MALARONE [Suspect]
     Indication: MALARIA PROPHYLAXIS
     Route: 048
     Dates: start: 20050901, end: 20050901

REACTIONS (4)
  - BURNING SENSATION [None]
  - PRURITUS [None]
  - SUNBURN [None]
  - URTICARIA [None]
